FAERS Safety Report 5272360-3 (Version None)
Quarter: 2007Q1

REPORT INFORMATION
  Report Type: 
  Country: None (occurrence: None)
  Receive Date: 20070320
  Receipt Date: 20070320
  Transmission Date: 20070707
  Serious: No
  Sender: FDA-Public Use
  Company Number: None

PATIENT
  Sex: Female
  Weight: 88.4514 kg

DRUGS (6)
  1. VECTIBIX [Suspect]
     Indication: COLON CANCER
     Dosage: 525 MG IV EVERY 2 WKS
     Route: 042
     Dates: start: 20070122
  2. VECTIBIX [Suspect]
     Indication: COLON CANCER
     Dosage: 525 MG IV EVERY 2 WKS
     Route: 042
     Dates: start: 20070205
  3. VECTIBIX [Suspect]
     Indication: COLON CANCER
     Dosage: 525 MG IV EVERY 2 WKS
     Route: 042
     Dates: start: 20070219
  4. DECADRON [Concomitant]
  5. BENADRYL [Concomitant]
  6. TYLENOL [Concomitant]

REACTIONS (2)
  - PAIN IN EXTREMITY [None]
  - PERIPHERAL ISCHAEMIA [None]
